FAERS Safety Report 16472891 (Version 2)
Quarter: 2019Q3

REPORT INFORMATION
  Report Type: Spontaneous
  Country: DE (occurrence: DE)
  Receive Date: 20190625
  Receipt Date: 20190720
  Transmission Date: 20191004
  Serious: Yes (Life-Threatening, Hospitalization, Other)
  Sender: FDA-Public Use
  Company Number: DE-AUROBINDO-AUR-APL-2019-035534

PATIENT

DRUGS (7)
  1. CANDESARTAN. [Concomitant]
     Active Substance: CANDESARTAN
     Indication: PRODUCT USED FOR UNKNOWN INDICATION
     Dosage: UNK , (ONCE A DAY)
     Route: 065
  2. ELIQUIS [Suspect]
     Active Substance: APIXABAN
     Dosage: 10 MILLIGRAM, DAILY (5 MILLIGRAM, BID)
     Route: 048
     Dates: start: 20190513
  3. ELIQUIS [Suspect]
     Active Substance: APIXABAN
     Dosage: 10 MILLIGRAM, DAILY (5 MILLIGRAM, BID)
     Route: 048
     Dates: start: 20181113, end: 20190503
  4. ELIQUIS [Suspect]
     Active Substance: APIXABAN
     Dosage: 10 MILLIGRAM, DAILY (5 MILLIGRAM, BID)
     Route: 048
     Dates: start: 20190514, end: 201905
  5. LEVOTHYROXINE. [Concomitant]
     Active Substance: LEVOTHYROXINE
     Indication: PRODUCT USED FOR UNKNOWN INDICATION
     Dosage: UNK, (ONCE A DAY)
     Route: 065
  6. RAMIPRIL. [Suspect]
     Active Substance: RAMIPRIL
     Indication: PRODUCT USED FOR UNKNOWN INDICATION
     Dosage: UNK
     Route: 065
  7. ELIQUIS [Suspect]
     Active Substance: APIXABAN
     Indication: CEREBROVASCULAR ACCIDENT PROPHYLAXIS
     Dosage: 10 MILLIGRAM, DAILY, (5 MILLIGRAM, BID)
     Route: 048
     Dates: start: 2017, end: 20190503

REACTIONS (7)
  - Mitral valve disease [Unknown]
  - Product use issue [Unknown]
  - Intentional product use issue [Unknown]
  - Chordae tendinae rupture [Unknown]
  - Post procedural haemorrhage [Recovering/Resolving]
  - Cough [Unknown]
  - Intracardiac thrombus [Unknown]

NARRATIVE: CASE EVENT DATE: 20190506
